FAERS Safety Report 13518034 (Version 1)
Quarter: 2017Q2

REPORT INFORMATION
  Report Type: Report from Study
  Country: US (occurrence: US)
  Receive Date: 20170505
  Receipt Date: 20170505
  Transmission Date: 20170830
  Serious: Yes (Other)
  Sender: FDA-Public Use
  Company Number: US-PFIZER INC-2017185400

PATIENT
  Age: 53 Year
  Sex: Male

DRUGS (3)
  1. SILDENAFIL CITRATE. [Suspect]
     Active Substance: SILDENAFIL CITRATE
     Indication: THALASSAEMIA BETA
     Dosage: 50 MG, 3X/DAY (1 WEEK)
     Route: 048
  2. SILDENAFIL CITRATE. [Suspect]
     Active Substance: SILDENAFIL CITRATE
     Dosage: 100 MG, 3X/DAY
     Route: 048
  3. SILDENAFIL CITRATE. [Suspect]
     Active Substance: SILDENAFIL CITRATE
     Dosage: 200 MG, DAILY (50 MG IN THE MORNING AND AFTERNOON;100 MG AT BEDTIME)
     Route: 048

REACTIONS (1)
  - Visual impairment [Recovering/Resolving]
